FAERS Safety Report 4335908-9 (Version None)
Quarter: 2004Q2

REPORT INFORMATION
  Report Type: 
  Country: None (occurrence: None)
  Receive Date: 20040405
  Receipt Date: 20040325
  Transmission Date: 20050107
  Serious: Yes (Other)
  Sender: FDA-Public Use
  Company Number: 2004-01304

PATIENT
  Age: 54 Year
  Sex: Male

DRUGS (5)
  1. ANDROPATCH (ANDRODERM) (TESTOSTERONE) TRANSDERMAL PATCH, 5 MG [Suspect]
     Indication: ANDROGEN REPLACEMENT THERAPY
     Dosage: 5 MG, DAILY, TRANSDERMAL
     Route: 062
     Dates: start: 20030523, end: 20030801
  2. TESTOGEL [Concomitant]
  3. WARFARIN SODIUM [Concomitant]
  4. ATENOLOL [Concomitant]
  5. DIGOXIN [Concomitant]

REACTIONS (2)
  - APPLICATION SITE IRRITATION [None]
  - BLOOD BILIRUBIN INCREASED [None]
